FAERS Safety Report 13971476 (Version 1)
Quarter: 2017Q3

REPORT INFORMATION
  Report Type: Spontaneous
  Country: US (occurrence: US)
  Receive Date: 20170914
  Receipt Date: 20170914
  Transmission Date: 20171128
  Serious: Yes (Other)
  Sender: FDA-Public Use
  Company Number: None

PATIENT
  Age: 65 Year
  Sex: Female
  Weight: 92.65 kg

DRUGS (11)
  1. MAGNESIUM [Concomitant]
     Active Substance: MAGNESIUM
  2. SILVER HYDROGEL [Concomitant]
  3. PROBIOTIC [Concomitant]
     Active Substance: PROBIOTICS NOS
  4. IBRANCE [Suspect]
     Active Substance: PALBOCICLIB
     Indication: BREAST CANCER
     Route: 048
     Dates: start: 20170613, end: 20170914
  5. OXYCODONE [Concomitant]
     Active Substance: OXYCODONE
  6. COENZYME Q10 [Concomitant]
     Active Substance: UBIDECARENONE
  7. VITAMIN B12 [Concomitant]
     Active Substance: CYANOCOBALAMIN
  8. OMEGA 3 [Concomitant]
     Active Substance: OMEGA-3 FATTY ACIDS
  9. CALIUM + D [Concomitant]
  10. ANASTROZOLE. [Concomitant]
     Active Substance: ANASTROZOLE
  11. VITAMIN D3 [Suspect]
     Active Substance: CHOLECALCIFEROL

REACTIONS (1)
  - Disease progression [None]
